FAERS Safety Report 12171805 (Version 2)
Quarter: 2016Q2

REPORT INFORMATION
  Report Type: Spontaneous
  Country: US (occurrence: US)
  Receive Date: 20160311
  Receipt Date: 20160615
  Transmission Date: 20160815
  Serious: No
  Sender: FDA-Public Use
  Company Number: US-GALDERMA-US16000936

PATIENT
  Age: 68 Year
  Sex: Male

DRUGS (5)
  1. MIRVASO [Suspect]
     Active Substance: BRIMONIDINE TARTRATE
     Dosage: 0.33%
     Route: 061
     Dates: start: 201410
  2. CETAPHIL CLEANSER [Concomitant]
     Route: 061
  3. OLALA SUN CARE SPF 30 ZINC OXIDE [Concomitant]
     Route: 061
  4. MIRVASO [Suspect]
     Active Substance: BRIMONIDINE TARTRATE
     Indication: ROSACEA
     Dosage: 0.33%
     Route: 061
     Dates: start: 20160127, end: 20160210
  5. MIRVASO [Suspect]
     Active Substance: BRIMONIDINE TARTRATE
     Dosage: 0.33%
     Route: 061
     Dates: start: 20160202, end: 20160210

REACTIONS (4)
  - Rash macular [Recovered/Resolved]
  - Rosacea [Not Recovered/Not Resolved]
  - Erythema [Not Recovered/Not Resolved]
  - Skin burning sensation [Recovered/Resolved]

NARRATIVE: CASE EVENT DATE: 20160127
